FAERS Safety Report 23300198 (Version 2)
Quarter: 2023Q4

REPORT INFORMATION
  Report Type: Spontaneous
  Country: US (occurrence: US)
  Receive Date: 20231215
  Receipt Date: 20231228
  Transmission Date: 20240109
  Serious: Yes (Hospitalization)
  Sender: FDA-Public Use
  Company Number: US-BRISTOL-MYERS SQUIBB COMPANY-2023-179394

PATIENT
  Age: 2 Year
  Sex: Female

DRUGS (3)
  1. ORENCIA [Suspect]
     Active Substance: ABATACEPT
     Indication: Graft versus host disease
     Dosage: 250MG/VL
     Route: 042
     Dates: start: 202308
  2. ORENCIA [Suspect]
     Active Substance: ABATACEPT
     Indication: Thrombotic microangiopathy
  3. ORENCIA [Suspect]
     Active Substance: ABATACEPT
     Indication: Thrombocytopenia

REACTIONS (1)
  - Hospitalisation [Unknown]
